FAERS Safety Report 7241203-0 (Version None)
Quarter: 2011Q1

REPORT INFORMATION
  Report Type: 
  Country: None (occurrence: None)
  Receive Date: 20110120
  Receipt Date: 20110120
  Transmission Date: 20110831
  Serious: Yes (Life-Threatening, Hospitalization)
  Sender: FDA-Public Use
  Company Number: None

PATIENT
  Sex: Female
  Weight: 90.7194 kg

DRUGS (1)
  1. COLCHICINE [Suspect]
     Indication: GOUT
     Dosage: 0.6 MG  1X DAY 7 DAYS
     Dates: start: 20090101, end: 20110101

REACTIONS (2)
  - BLOOD PRESSURE ABNORMAL [None]
  - CARDIAC DISORDER [None]
